FAERS Safety Report 7440122-4 (Version None)
Quarter: 2011Q2

REPORT INFORMATION
  Report Type: 
  Country: None (occurrence: None)
  Receive Date: 20110427
  Receipt Date: 20101214
  Transmission Date: 20111010
  Serious: Yes (Hospitalization, Other)
  Sender: FDA-Public Use
  Company Number: US-BAYER-201026176NA

PATIENT
  Age: 38 Year
  Sex: Female
  Weight: 94.785 kg

DRUGS (18)
  1. YAZ [Suspect]
     Dosage: UNK
     Dates: start: 20070101, end: 20080701
  2. PRILOSEC [Concomitant]
     Dosage: UNK
     Dates: start: 20080601, end: 20080701
  3. APAP W/ CODEINE [Concomitant]
  4. AMBIEN [Concomitant]
     Dosage: UNK
     Dates: start: 20080627
  5. HYDROCODONE BITARTRATE AND ACETAMINOPHEN [Concomitant]
  6. AZITHROMYCIN [Concomitant]
  7. BENZONATATE [Concomitant]
  8. YASMIN [Suspect]
     Route: 048
     Dates: start: 20061201, end: 20090401
  9. NORTRIPTYLINE [Concomitant]
  10. NSAID'S [Concomitant]
     Indication: PAIN
  11. PAROXETINE HCL [Concomitant]
  12. ALBUTEROL [Concomitant]
  13. ANTIBIOTICS [Concomitant]
     Indication: VIRAL INFECTION
  14. HYDROCHLOROTHIAZDE TAB [Concomitant]
  15. GUAIFENESIN DM [Concomitant]
  16. TEMAZEPAM [Concomitant]
  17. YAZ [Suspect]
     Indication: CONTRACEPTION
     Route: 048
     Dates: start: 20061201, end: 20090401
  18. FLUOXETINE [Concomitant]
     Dosage: UNK
     Dates: start: 20080601, end: 20080801

REACTIONS (6)
  - ABDOMINAL PAIN UPPER [None]
  - GALLBLADDER DISORDER [None]
  - DYSPEPSIA [None]
  - PROCEDURAL PAIN [None]
  - CHOLELITHIASIS [None]
  - BILIARY COLIC [None]
